FAERS Safety Report 25846604 (Version 2)
Quarter: 2025Q4

REPORT INFORMATION
  Report Type: Other
  Country: EU (occurrence: EU)
  Receive Date: 20250925
  Receipt Date: 20251117
  Transmission Date: 20260119
  Serious: Yes (Hospitalization, Other)
  Sender: Atnahs Healthcare
  Company Number: None

PATIENT

DRUGS (15)
  1. DIAZEPAM [Suspect]
     Active Substance: DIAZEPAM
     Indication: Product used for unknown indication
     Dosage: UNK
     Route: 065
  2. DIAZEPAM [Suspect]
     Active Substance: DIAZEPAM
     Indication: Schizophrenia
     Dosage: 7 MG
     Route: 048
     Dates: start: 20251003
  3. COCAINE [Suspect]
     Active Substance: COCAINE
     Indication: Product used for unknown indication
     Dosage: 2-3G OF CRACK/DAY
  4. COCAINE [Suspect]
     Active Substance: COCAINE
     Dosage: SPEEDBALL
     Route: 065
  5. COCAINE [Suspect]
     Active Substance: COCAINE
     Dosage: 8G OF CRACK
     Dates: start: 20250909, end: 20250909
  6. COCAINE [Suspect]
     Active Substance: COCAINE
     Dosage: 2 SPEEDBALLS
     Route: 065
     Dates: start: 20250909, end: 20250909
  7. UNSPECIFIED INGREDIENT [Suspect]
     Active Substance: UNSPECIFIED INGREDIENT
     Indication: Product used for unknown indication
     Dosage: SPEEDBALL
     Route: 065
  8. UNSPECIFIED INGREDIENT [Suspect]
     Active Substance: UNSPECIFIED INGREDIENT
     Dosage: 2 SPEEDBALLS
     Route: 065
     Dates: start: 20250909, end: 20250909
  9. CANNABIS SATIVA SUBSP. INDICA TOP [Suspect]
     Active Substance: CANNABIS SATIVA SUBSP. INDICA TOP
     Indication: Product used for unknown indication
     Dosage: UNK
     Route: 065
  10. METHADONE HYDROCHLORIDE [Suspect]
     Active Substance: METHADONE HYDROCHLORIDE
     Indication: Product used for unknown indication
     Dosage: UNK
     Route: 065
  11. TOPIRAMATE [Suspect]
     Active Substance: TOPIRAMATE
     Indication: Mood swings
     Dosage: 25 MG, DAILY
     Route: 048
     Dates: start: 20251017, end: 20251021
  12. LANSOPRAZOLE [Suspect]
     Active Substance: LANSOPRAZOLE
     Indication: Product used for unknown indication
     Dosage: 30 MG, DAILY
     Route: 048
     Dates: start: 20251003
  13. TROPATEPINE HYDROCHLORIDE [Suspect]
     Active Substance: TROPATEPINE HYDROCHLORIDE
     Indication: Schizophrenia
     Dosage: 10 MG
     Route: 048
     Dates: start: 20251004
  14. LEVOMEPROMAZINE [Suspect]
     Active Substance: LEVOMEPROMAZINE
     Indication: Schizophrenia
     Dosage: 25 MG, Q6HR
     Route: 048
     Dates: start: 20251003
  15. LOXAPINE [Suspect]
     Active Substance: LOXAPINE
     Indication: Schizophrenia
     Dosage: 50 MG, DAILY
     Route: 048
     Dates: start: 20251003

REACTIONS (8)
  - Drug abuse [Not Recovered/Not Resolved]
  - Asthenia [Recovering/Resolving]
  - Angina pectoris [Recovered/Resolved]
  - Suicidal ideation [Not Recovered/Not Resolved]
  - Muscle tightness [Recovered/Resolved]
  - Hyperhidrosis [Recovered/Resolved]
  - Dizziness [Recovered/Resolved]
  - Musculoskeletal stiffness [Recovered/Resolved]

NARRATIVE: CASE EVENT DATE: 20250909
